FAERS Safety Report 5451020-X (Version None)
Quarter: 2007Q3

REPORT INFORMATION
  Report Type: 
  Country: None (occurrence: None)
  Receive Date: 20070801
  Receipt Date: 20061025
  Transmission Date: 20080115
  Serious: Yes (Other)
  Sender: FDA-Public Use
  Company Number: PHEH2006US13353

PATIENT
  Age: 49 Year
  Sex: Female

DRUGS (3)
  1. RITALIN LA [Suspect]
     Indication: ATTENTION DEFICIT/HYPERACTIVITY DISORDER
     Dosage: 20 MG, QD, ORAL. 20 MG, QD, ORAL
     Route: 048
     Dates: start: 20030101, end: 20041201
  2. RITALIN LA [Suspect]
     Indication: ATTENTION DEFICIT/HYPERACTIVITY DISORDER
     Dosage: 20 MG, QD, ORAL. 20 MG, QD, ORAL
     Route: 048
     Dates: start: 20061012
  3. KEPPRA [Concomitant]

REACTIONS (3)
  - BLOOD PRESSURE INCREASED [None]
  - DEPRESSED MOOD [None]
  - FEELING ABNORMAL [None]
